FAERS Safety Report 7380439-5 (Version None)
Quarter: 2011Q1

REPORT INFORMATION
  Report Type: 
  Country: None (occurrence: None)
  Receive Date: 20110324
  Receipt Date: 20110324
  Transmission Date: 20110831
  Serious: Yes (Disabling)
  Sender: FDA-Public Use
  Company Number: None

PATIENT
  Sex: Male
  Weight: 151.9 kg

DRUGS (3)
  1. METFORMIN HCL [Concomitant]
  2. KETOROLAC TROMETHAMINE [Suspect]
     Indication: PAIN
     Dosage: 30 MG EVERY 6 HOURS IV
     Route: 042
     Dates: start: 20110227, end: 20110228
  3. LISINOPRIL [Concomitant]

REACTIONS (2)
  - FLUID OVERLOAD [None]
  - RENAL FAILURE ACUTE [None]
